FAERS Safety Report 9347408 (Version 1)
Quarter: 2013Q2

REPORT INFORMATION
  Report Type: Spontaneous
  Country: GB (occurrence: GB)
  Receive Date: 20130613
  Receipt Date: 20130613
  Transmission Date: 20140414
  Serious: Yes (Other)
  Sender: FDA-Public Use
  Company Number: GB-MYLANLABS-2013S1012027

PATIENT
  Age: 76 Year
  Sex: Male

DRUGS (1)
  1. LEVETIRACETAM [Suspect]
     Indication: GRAND MAL CONVULSION
     Route: 048
     Dates: start: 20120614, end: 20130322

REACTIONS (1)
  - Tardive dyskinesia [Recovered/Resolved with Sequelae]
